FAERS Safety Report 7859603-4 (Version None)
Quarter: 2011Q4

REPORT INFORMATION
  Report Type: 
  Country: None (occurrence: None)
  Receive Date: 20111027
  Receipt Date: 20111019
  Transmission Date: 20120403
  Serious: Yes (Other)
  Sender: FDA-Public Use
  Company Number: JP-SANOFI-AVENTIS-2011SA024841

PATIENT
  Sex: Male

DRUGS (1)
  1. DOCETAXEL [Suspect]
     Indication: PROSTATE CANCER
     Dosage: DOSE: 40 TO 75 MG/M2, REPEATED EVERY 3 OR 4 WEEKS, FORM: INFUSION
     Route: 042

REACTIONS (12)
  - NEUTROPENIA [None]
  - GASTRITIS [None]
  - OSTEONECROSIS OF JAW [None]
  - GASTROINTESTINAL TOXICITY [None]
  - ANAPHYLACTIC SHOCK [None]
  - DEEP VEIN THROMBOSIS [None]
  - GASTRIC ULCER HAEMORRHAGE [None]
  - WHITE BLOOD CELL COUNT DECREASED [None]
  - BONE MARROW FAILURE [None]
  - MALAISE [None]
  - HAEMATOTOXICITY [None]
  - DECREASED APPETITE [None]
